FAERS Safety Report 20778224 (Version 1)
Quarter: 2022Q2

REPORT INFORMATION
  Report Type: Spontaneous
  Country: US (occurrence: None)
  Receive Date: 20220502
  Receipt Date: 20220502
  Transmission Date: 20220721
  Serious: Yes (Other)
  Sender: FDA-Public Use
  Company Number: None

PATIENT
  Age: 34 Year
  Sex: Female
  Weight: 147.42 kg

DRUGS (1)
  1. AIMOVIG [Suspect]
     Active Substance: ERENUMAB-AOOE
     Indication: Migraine prophylaxis
     Dosage: OTHER QUANTITY : 1 INJECTION ;?FREQUENCY : MONTHLY;?
     Route: 030
     Dates: start: 20220210, end: 20220408

REACTIONS (3)
  - Pain in jaw [None]
  - Myalgia [None]
  - Muscle tightness [None]

NARRATIVE: CASE EVENT DATE: 20220408
